FAERS Safety Report 21370442 (Version 6)
Quarter: 2023Q2

REPORT INFORMATION
  Report Type: Spontaneous
  Country: US (occurrence: US)
  Receive Date: 20220923
  Receipt Date: 20230413
  Transmission Date: 20230722
  Serious: Yes (Other)
  Sender: FDA-Public Use
  Company Number: US-Blueprint Medicines Corporation-SP-US-2022-002847

PATIENT
  Age: 74 Year
  Sex: Female

DRUGS (6)
  1. AYVAKIT [Suspect]
     Active Substance: AVAPRITINIB
     Indication: Chronic myelomonocytic leukaemia
     Route: 048
     Dates: start: 20210824
  2. AYVAKIT [Suspect]
     Active Substance: AVAPRITINIB
     Indication: Malignant mast cell neoplasm
     Route: 065
     Dates: start: 20210830
  3. AYVAKIT [Suspect]
     Active Substance: AVAPRITINIB
     Dosage: AYVAKIT 100 MG TAKE 1 TABLET BY MOUTH, EVERY OTHER DAY ALTERNATING WITH AYVAKIT 50 MILLIGRAM
     Route: 048
     Dates: start: 20210824
  4. AYVAKIT [Suspect]
     Active Substance: AVAPRITINIB
     Dosage: AYVAKIT 100 MG TAKE 1 TABLET BY MOUTH, EVERY OTHER DAY ALTERNATING WITH AYVAKIT 50 MILLIGRAM
     Route: 048
     Dates: start: 20210824
  5. AYVAKIT [Suspect]
     Active Substance: AVAPRITINIB
     Route: 048
     Dates: start: 20210824
  6. AYVAKIT [Suspect]
     Active Substance: AVAPRITINIB
     Route: 065
     Dates: start: 20210830

REACTIONS (9)
  - Clostridium difficile infection [Not Recovered/Not Resolved]
  - Dyspnoea [Not Recovered/Not Resolved]
  - Oropharyngeal pain [Not Recovered/Not Resolved]
  - Large intestine infection [Not Recovered/Not Resolved]
  - Infection [Unknown]
  - Blood alkaline phosphatase increased [Not Recovered/Not Resolved]
  - Drug intolerance [Unknown]
  - Symptom recurrence [Not Recovered/Not Resolved]
  - Off label use [Unknown]

NARRATIVE: CASE EVENT DATE: 20221121
